FAERS Safety Report 8802630 (Version 3)
Quarter: 2013Q2

REPORT INFORMATION
  Report Type: Report from Study
  Country: JP (occurrence: JP)
  Receive Date: 20120921
  Receipt Date: 20130423
  Transmission Date: 20140414
  Serious: Yes (Other)
  Sender: FDA-Public Use
  Company Number: JP-VERTEX PHARMACEUTICAL INC.-AE-2012-011510

PATIENT
  Age: 72 Year
  Sex: Male

DRUGS (22)
  1. VX-950 (TELAPREVIR) [Suspect]
     Indication: CHRONIC HEPATITIS C
     Dosage: 1500 MG, QD
     Route: 048
     Dates: start: 20120207, end: 20120409
  2. VX-950 (TELAPREVIR) [Suspect]
     Dosage: 750 MG, QD
     Route: 048
     Dates: start: 20120410, end: 20120423
  3. VX-950 (TELAPREVIR) [Suspect]
     Dosage: 1500 MG, QD
     Route: 048
     Dates: start: 20120424, end: 20120501
  4. RIBAVIRIN [Suspect]
     Indication: CHRONIC HEPATITIS C
     Dosage: 400 MG, QD
     Route: 048
     Dates: start: 20120207, end: 20120313
  5. RIBAVIRIN [Suspect]
     Dosage: 200 MG, QD
     Route: 048
     Dates: start: 20120314, end: 20120326
  6. RIBAVIRIN [Suspect]
     Dosage: 100 MG, QD
     Route: 048
     Dates: start: 20120327, end: 20120416
  7. RIBAVIRIN [Suspect]
     Dosage: 57.14 MG, QD
     Route: 048
     Dates: start: 20120417, end: 20120529
  8. RIBAVIRIN [Suspect]
     Dosage: 57.14 MG, QD
     Route: 048
     Dates: start: 20120605, end: 20120625
  9. RIBAVIRIN [Suspect]
     Dosage: 200 MG, QD
     Route: 048
     Dates: start: 20120626, end: 20120709
  10. PEGINTERFERON ALFA-2B [Suspect]
     Indication: CHRONIC HEPATITIS C
     Dosage: 1.5 ?G/KG, QW
     Route: 058
     Dates: start: 20120207, end: 20120213
  11. PEGINTERFERON ALFA-2B [Suspect]
     Dosage: 1.3 ?G/KG, QW
     Route: 058
     Dates: start: 20120214, end: 20120220
  12. PEGINTERFERON ALFA-2B [Suspect]
     Dosage: 1.5 ?G/KG, QW
     Route: 058
     Dates: start: 20120221, end: 20120227
  13. PEGINTERFERON ALFA-2B [Suspect]
     Dosage: 1.3 ?G/KG, QW
     Route: 058
     Dates: start: 20120228, end: 20120529
  14. PEGINTERFERON ALFA-2B [Suspect]
     Dosage: 1.3 ?G/KG, QW
     Route: 058
     Dates: start: 20120605, end: 20120709
  15. URSO [Concomitant]
     Dosage: 300 MG, QD
     Route: 048
  16. PROHEPARUM [Concomitant]
     Dosage: 6 DF, QD
     Route: 048
  17. NEO-MINOPHAGEN C [Concomitant]
     Dosage: 3 DF, QD
     Route: 042
     Dates: end: 20120220
  18. REBAMIPIDE [Concomitant]
     Dosage: 300 MG, QD
     Route: 048
  19. HYALEIN [Concomitant]
     Dosage: UNK, QD
     Route: 047
  20. OMEPRAZOLE [Concomitant]
     Dosage: 10 MG, QD
     Route: 048
  21. LENDORMIN [Concomitant]
     Dosage: 0.25 MG, QD/PRN
     Route: 048
     Dates: end: 20120222
  22. URINORM [Concomitant]
     Dosage: 50 MG, QD
     Route: 048

REACTIONS (1)
  - Hepatocellular carcinoma [Not Recovered/Not Resolved]
